FAERS Safety Report 9392139 (Version 3)
Quarter: 2013Q4

REPORT INFORMATION
  Report Type: Spontaneous
  Country: JP (occurrence: JP)
  Receive Date: 20130709
  Receipt Date: 20131028
  Transmission Date: 20140711
  Serious: Yes (Hospitalization)
  Sender: FDA-Public Use
  Company Number: JP-PFIZER INC-2013172795

PATIENT
  Age: 45 Year
  Sex: Female
  Weight: 67 kg

DRUGS (2)
  1. AZULFIDINE [Suspect]
     Indication: RHEUMATOID ARTHRITIS
     Dosage: 1000 MG, DAILY
     Dates: start: 20120508, end: 20120516
  2. AZULFIDINE [Suspect]
     Indication: JOINT SWELLING
     Dosage: 1000 MG, DAILY
     Dates: start: 20120530, end: 20120607

REACTIONS (4)
  - Systemic lupus erythematosus [Unknown]
  - White blood cell count decreased [Recovered/Resolved]
  - Pyrexia [Unknown]
  - Rash [Unknown]
